FAERS Safety Report 19485914 (Version 1)
Quarter: 2021Q3

REPORT INFORMATION
  Report Type: Spontaneous
  Country: JP (occurrence: JP)
  Receive Date: 20210702
  Receipt Date: 20210702
  Transmission Date: 20211014
  Serious: Yes (Death, Hospitalization, Other)
  Sender: FDA-Public Use
  Company Number: JP-GLAXOSMITHKLINE-JP2021JPN140050

PATIENT
  Age: 75 Year
  Sex: Female

DRUGS (4)
  1. SAMTIREL [Suspect]
     Active Substance: ATOVAQUONE
     Indication: ANTIFUNGAL PROPHYLAXIS
     Dosage: UNK
     Route: 048
  2. PREDNISOLONE. [Concomitant]
     Active Substance: PREDNISOLONE
     Indication: STILL^S DISEASE
     Dosage: 30 MG, 1D
  3. PREDNISOLONE. [Concomitant]
     Active Substance: PREDNISOLONE
     Dosage: 35 MG, 1D
  4. PREDNISOLONE. [Concomitant]
     Active Substance: PREDNISOLONE
     Dosage: 27.5 MG, 1D

REACTIONS (9)
  - Condition aggravated [Unknown]
  - Splenomegaly [Unknown]
  - Disseminated intravascular coagulation [Unknown]
  - Drug-induced liver injury [Unknown]
  - Liver disorder [Unknown]
  - Still^s disease [Unknown]
  - Encephalopathy [Unknown]
  - Acute hepatic failure [Fatal]
  - General physical health deterioration [Unknown]
